FAERS Safety Report 24000818 (Version 1)
Quarter: 2024Q2

REPORT INFORMATION
  Report Type: Spontaneous
  Country: US (occurrence: US)
  Receive Date: 20240621
  Receipt Date: 20240621
  Transmission Date: 20240715
  Serious: No
  Sender: FDA-Public Use
  Company Number: US-MYLANLABS-2024M1054120

PATIENT

DRUGS (1)
  1. BREYNA [Suspect]
     Active Substance: BUDESONIDE\FORMOTEROL FUMARATE
     Indication: Product used for unknown indication
     Dosage: UNK
     Route: 055

REACTIONS (7)
  - Burning sensation [Unknown]
  - Cough [Unknown]
  - Therapeutic response changed [Unknown]
  - Respiratory tract irritation [Unknown]
  - Vocal cord disorder [Unknown]
  - Product substitution issue [Unknown]
  - Device issue [Unknown]
